FAERS Safety Report 8009061-4 (Version None)
Quarter: 2011Q4

REPORT INFORMATION
  Report Type: 
  Country: None (occurrence: None)
  Receive Date: 20111227
  Receipt Date: 20111220
  Transmission Date: 20120403
  Serious: No
  Sender: FDA-Public Use
  Company Number: US-PFIZER INC-2011308835

PATIENT
  Sex: Female
  Weight: 108.84 kg

DRUGS (4)
  1. ZOLOFT [Concomitant]
     Dosage: UNK
  2. TOVIAZ [Suspect]
     Dosage: 8 MG, 1X/DAY
  3. TOVIAZ [Suspect]
     Indication: HYPERTONIC BLADDER
     Dosage: 4 MG, 1X/DAY
     Route: 048
     Dates: start: 20111001
  4. SYNTHROID [Concomitant]
     Dosage: UNK

REACTIONS (2)
  - DRUG INEFFECTIVE [None]
  - NOCTURIA [None]
